FAERS Safety Report 22291895 (Version 1)
Quarter: 2023Q2

REPORT INFORMATION
  Report Type: Spontaneous
  Country: NO (occurrence: NO)
  Receive Date: 20230507
  Receipt Date: 20230507
  Transmission Date: 20230721
  Serious: Yes (Hospitalization, Other)
  Sender: FDA-Public Use
  Company Number: NO-MYLANLABS-2022M1009630

PATIENT
  Sex: Female

DRUGS (4)
  1. PREDNISOLONE [Suspect]
     Active Substance: PREDNISOLONE
     Indication: Product used for unknown indication
     Dosage: UNK
     Route: 065
  2. PREDNISOLONE [Suspect]
     Active Substance: PREDNISOLONE
     Dosage: INCREASED PREDNISOLONE DOSE FOR ONE WEEK
     Route: 065
  3. FURADANTIN [Suspect]
     Active Substance: NITROFURANTOIN
     Indication: Urinary tract infection
     Dosage: UNK
     Route: 065
     Dates: start: 20201204, end: 20201211
  4. TRIMETHOPRIM [Suspect]
     Active Substance: TRIMETHOPRIM
     Indication: Infection
     Dosage: UNK
     Route: 065

REACTIONS (23)
  - Interstitial lung disease [Unknown]
  - Skin neoplasm excision [Unknown]
  - Systemic inflammatory response syndrome [Unknown]
  - Condition aggravated [Unknown]
  - Diaphragmatic paralysis [Unknown]
  - Pyelonephritis acute [Unknown]
  - Nightmare [Unknown]
  - Fatigue [Unknown]
  - Poisoning [Unknown]
  - Blindness unilateral [Recovered/Resolved]
  - Dehydration [Unknown]
  - Pneumonitis [Unknown]
  - Facial paralysis [Recovered/Resolved]
  - Respiratory failure [Unknown]
  - Cataract [Unknown]
  - Sepsis [Unknown]
  - Diarrhoea [Unknown]
  - Vision blurred [Unknown]
  - Abdominal discomfort [Unknown]
  - Hypoacusis [Unknown]
  - Rosacea [Unknown]
  - Photophobia [Unknown]
  - Rash [Unknown]

NARRATIVE: CASE EVENT DATE: 20201201
